FAERS Safety Report 12865070 (Version 1)
Quarter: 2016Q4

REPORT INFORMATION
  Report Type: Report from Study
  Country: MW (occurrence: MW)
  Receive Date: 20161020
  Receipt Date: 20161020
  Transmission Date: 20170207
  Serious: Yes (Death, Other)
  Sender: FDA-Public Use
  Company Number: MW-CIPLA LTD.-2016MW19507

PATIENT

DRUGS (9)
  1. ZIDOVUDINE. [Suspect]
     Active Substance: ZIDOVUDINE
     Indication: PROPHYLAXIS AGAINST HIV INFECTION
     Dosage: 2 MG/KG, BID FOR 7 DAYS
     Route: 065
  2. NEVIRAPINE. [Suspect]
     Active Substance: NEVIRAPINE
     Dosage: UNK, SINGLE
     Route: 048
  3. LAMIVUDINE/ZIDOVUDINE [Suspect]
     Active Substance: LAMIVUDINE\ZIDOVUDINE
     Dosage: UNK
     Route: 063
  4. SULFAMETHOXAZOLE-TRIMETHOPRIM (SMZ) [Suspect]
     Active Substance: SULFAMETHOXAZOLE\TRIMETHOPRIM
     Indication: PROPHYLAXIS
     Dosage: 240 MG, QD
     Route: 065
  5. LAMIVUDINE/ZIDOVUDINE [Suspect]
     Active Substance: LAMIVUDINE\ZIDOVUDINE
     Dosage: UNK
     Route: 064
  6. NEVIRAPINE. [Suspect]
     Active Substance: NEVIRAPINE
     Dosage: 30 MG, DAILY FOR WEEKS 19 THROUGH 28
     Route: 065
  7. LAMIVUDINE. [Suspect]
     Active Substance: LAMIVUDINE
     Indication: PROPHYLAXIS AGAINST HIV INFECTION
     Dosage: 4 MG/KG, BID FOR 7 DAYS
     Route: 065
  8. NEVIRAPINE. [Suspect]
     Active Substance: NEVIRAPINE
     Dosage: 10 MG, DAILY IN THE FIRST 2 WEEKS
     Route: 065
  9. NEVIRAPINE. [Suspect]
     Active Substance: NEVIRAPINE
     Indication: PROPHYLAXIS AGAINST HIV INFECTION
     Dosage: UNK
     Route: 064

REACTIONS (3)
  - Sepsis [Fatal]
  - Exposure during breast feeding [Unknown]
  - Foetal exposure during delivery [Unknown]
